FAERS Safety Report 6142552-X (Version None)
Quarter: 2009Q2

REPORT INFORMATION
  Report Type: 
  Country: None (occurrence: None)
  Receive Date: 20090403
  Receipt Date: 20090323
  Transmission Date: 20091009
  Serious: Yes (Other)
  Sender: FDA-Public Use
  Company Number: US-JNJFOC-20090306087

PATIENT
  Sex: Male

DRUGS (9)
  1. REMICADE [Suspect]
     Indication: PSORIASIS
     Route: 042
  2. REMICADE [Suspect]
     Indication: RHEUMATOID ARTHRITIS
     Route: 042
  3. METHOTREXATE SODIUM [Concomitant]
  4. MOBIC [Concomitant]
  5. LIPITOR [Concomitant]
  6. FEXOFENADINE [Concomitant]
  7. FLONASE [Concomitant]
  8. GLIPIZIDE [Concomitant]
  9. JANUVIA [Concomitant]

REACTIONS (1)
  - LUNG NEOPLASM MALIGNANT [None]
